FAERS Safety Report 12322730 (Version 3)
Quarter: 2017Q3

REPORT INFORMATION
  Report Type: Spontaneous
  Country: US (occurrence: US)
  Receive Date: 20160502
  Receipt Date: 20170927
  Transmission Date: 20171127
  Serious: No
  Sender: FDA-Public Use
  Company Number: US-PFIZER INC-2016227900

PATIENT
  Age: 57 Year
  Sex: Male

DRUGS (23)
  1. LASIX [Concomitant]
     Active Substance: FUROSEMIDE
     Indication: FLUID RETENTION
     Dosage: 40 MG, AS NEEDED (TAKE WITH ORANGE OR TOMATO JUICE)
     Route: 048
  2. ZANAFLEX [Concomitant]
     Active Substance: TIZANIDINE HYDROCHLORIDE
     Dosage: 8 MG, 3X/DAY (TAKE 2 TABLETS EVERY 8 HOURS)
     Route: 048
  3. CYMBALTA [Concomitant]
     Active Substance: DULOXETINE HYDROCHLORIDE
     Dosage: 30 MG, 2X/DAY
     Route: 048
  4. PRINIVIL [Concomitant]
     Active Substance: LISINOPRIL
     Dosage: 5 MG, 1X/DAY(DAILY EARLY MORNING)
     Route: 048
  5. PRODRIN [Concomitant]
     Active Substance: ACETAMINOPHEN\CAFFEINE\ISOMETHEPTENE MUCATE
     Dosage: UNK UNK, AS NEEDED [ISOMETHEPTENE-130MG]/[CAFFEINE-20MG]/[ACETAMINOPHEN-500MG]
     Route: 048
  6. LYRICA [Suspect]
     Active Substance: PREGABALIN
     Dosage: 150 MG, 3X/DAY
     Route: 048
  7. LYRICA [Suspect]
     Active Substance: PREGABALIN
     Dosage: 100 MG, 3X/DAY (EVERY 8 HOURS)
     Route: 048
     Dates: start: 20170720
  8. TYLENOL [Concomitant]
     Active Substance: ACETAMINOPHEN
     Indication: PAIN
     Dosage: 1000 MG, AS NEEDED (2 TABLET EVERY 6 HOURS)
     Route: 048
  9. ASPIRIN. [Concomitant]
     Active Substance: ASPIRIN
     Dosage: 162 MG, DAILY
     Route: 048
  10. MAG-OX [Concomitant]
     Active Substance: MAGNESIUM OXIDE
     Dosage: 400 MG, 2X/DAY
     Route: 048
  11. LYRICA [Suspect]
     Active Substance: PREGABALIN
     Dosage: 100 MG, 3X/DAY, (EVERY 8 HOURS)
     Route: 048
     Dates: start: 20170921
  12. PLAVIX [Concomitant]
     Active Substance: CLOPIDOGREL BISULFATE
     Dosage: 75 MG, DAILY
     Route: 048
  13. DESYREL [Concomitant]
     Active Substance: TRAZODONE HYDROCHLORIDE
     Indication: INSOMNIA
     Dosage: 100 MG, AS NEEDED NIGHTLY
     Route: 048
  14. HUMALOG MIX [Concomitant]
     Active Substance: INSULIN LISPRO
     Dosage: 15 IU, 2X/DAY [INSULIN LISPRO-25]/[INSULIN LISPRO PROTAMINE SUSPENSION-75], DAILY WITH MEALS)
     Route: 058
  15. ZOFRAN [Concomitant]
     Active Substance: ONDANSETRON HYDROCHLORIDE
     Indication: NAUSEA
     Dosage: 4 MG, AS NEEDED (EVERY 6 HOURS) (DISSOLVE TABLET ON TOP OF TONGUE, THEN SWALLOW WITH SALIVA)
     Route: 048
  16. CHANTIX [Concomitant]
     Active Substance: VARENICLINE TARTRATE
     Dosage: UNK (0.5 MG (11) - 1 MG (42) TABLETS)
  17. LIPITOR [Concomitant]
     Active Substance: ATORVASTATIN CALCIUM
     Dosage: 80 MG, DAILY
     Route: 048
  18. LEXAPRO [Concomitant]
     Active Substance: ESCITALOPRAM OXALATE
     Dosage: 5 MG, DAILY
     Route: 048
  19. IMDUR [Concomitant]
     Active Substance: ISOSORBIDE MONONITRATE
     Dosage: 15 MG, 1X/DAY (TAKE 0.5 TABLET DAILY EARLY MORNING)
     Route: 048
  20. NITROSTAT [Concomitant]
     Active Substance: NITROGLYCERIN
     Indication: CHEST PAIN
     Dosage: 0.4 MG, AS NEEDED (UNDER TONGUE EVERY 5 MINUTES)
     Route: 060
  21. GLUCOPHAGE [Concomitant]
     Active Substance: METFORMIN HYDROCHLORIDE
     Dosage: 250 MG, 2X/DAY (TAKE 0.5 TABLET 2 TIMES DAILY WITH MEALS)
     Route: 048
  22. LOPRESSOR [Concomitant]
     Active Substance: METOPROLOL TARTRATE
     Dosage: 25 MG, 2X/DAY (EVERY 12 HOURS)
     Route: 048
  23. ZOFRAN [Concomitant]
     Active Substance: ONDANSETRON HYDROCHLORIDE
     Indication: VOMITING

REACTIONS (1)
  - Peripheral swelling [Unknown]
